FAERS Safety Report 25962790 (Version 2)
Quarter: 2025Q4

REPORT INFORMATION
  Report Type: Report from Study
  Country: ZA (occurrence: ZA)
  Receive Date: 20251027
  Receipt Date: 20251125
  Transmission Date: 20260117
  Serious: Yes (Hospitalization)
  Sender: SANOFI AVENTIS
  Company Number: ZA-SA-2025SA263979

PATIENT
  Age: 52 Year
  Sex: Female

DRUGS (1)
  1. INSULIN GLARGINE [Suspect]
     Active Substance: INSULIN GLARGINE
     Indication: Type 2 diabetes mellitus
     Dosage: 40 IU, QD
     Route: 058
     Dates: start: 20250825

REACTIONS (15)
  - Bronchitis [Recovering/Resolving]
  - Cough [Recovering/Resolving]
  - Wheezing [Recovering/Resolving]
  - Decreased appetite [Recovering/Resolving]
  - Back pain [Recovering/Resolving]
  - Abdominal pain [Unknown]
  - Cystocele [Recovering/Resolving]
  - Pain in extremity [Unknown]
  - Melanoderma [Recovered/Resolved with Sequelae]
  - Nail fold inflammation [Recovering/Resolving]
  - Blood glucose increased [Recovering/Resolving]
  - Rash pruritic [Recovered/Resolved with Sequelae]
  - Blood glucose decreased [Unknown]
  - Night sweats [Unknown]
  - Asthenia [Unknown]

NARRATIVE: CASE EVENT DATE: 20250101
